FAERS Safety Report 8562415-X (Version None)
Quarter: 2012Q3

REPORT INFORMATION
  Report Type: 
  Country: None (occurrence: None)
  Receive Date: 20120802
  Receipt Date: 20120703
  Transmission Date: 20120928
  Serious: No
  Sender: FDA-Public Use
  Company Number: US-AMGEN-USASP2011015498

PATIENT
  Age: 57 Year
  Sex: Male
  Weight: 108 kg

DRUGS (1)
  1. ENBREL [Suspect]
     Indication: TUMOUR NECROSIS FACTOR RECEPTOR-ASSOCIATED PERIODIC SYNDROME
     Dosage: 40 MG, QWK
     Route: 058
     Dates: start: 20110201, end: 20110401

REACTIONS (5)
  - BACK PAIN [None]
  - VOMITING [None]
  - OEDEMA PERIPHERAL [None]
  - PAIN [None]
  - DRUG INEFFECTIVE [None]
